FAERS Safety Report 6568766-2 (Version None)
Quarter: 2010Q1

REPORT INFORMATION
  Report Type: 
  Country: None (occurrence: None)
  Receive Date: 20100203
  Receipt Date: 20100125
  Transmission Date: 20100710
  Serious: Yes (Other)
  Sender: FDA-Public Use
  Company Number: US-AMGEN-QUU388422

PATIENT
  Sex: Male

DRUGS (1)
  1. ENBREL [Suspect]
     Indication: PSORIASIS
     Route: 058
     Dates: start: 20090801

REACTIONS (4)
  - BARRETT'S OESOPHAGUS [None]
  - OESOPHAGEAL DYSPLASIA [None]
  - PSORIASIS [None]
  - SCAR [None]
